FAERS Safety Report 24194467 (Version 1)
Quarter: 2024Q3

REPORT INFORMATION
  Report Type: Spontaneous
  Country: FR (occurrence: FR)
  Receive Date: 20240809
  Receipt Date: 20240809
  Transmission Date: 20241017
  Serious: Yes (Other)
  Sender: HIKMA
  Company Number: None

PATIENT

DRUGS (8)
  1. CARBOPLATIN [Suspect]
     Active Substance: CARBOPLATIN
     Indication: Bronchial carcinoma
     Dosage: 560 MILLIGRAM, SINGLE
     Route: 042
     Dates: start: 20240510, end: 20240510
  2. CYANOCOBALAMIN [Suspect]
     Active Substance: CYANOCOBALAMIN
     Indication: Chemotherapy side effect prophylaxis
     Dosage: 1000 MICROGRAM, SINGLE
     Route: 042
     Dates: start: 20240510, end: 20240510
  3. FOLIC ACID [Suspect]
     Active Substance: FOLIC ACID
     Indication: Chemotherapy side effect prophylaxis
     Dosage: 0.4 MILLIGRAM, SINGLE
     Route: 042
     Dates: start: 20240510, end: 20240510
  4. METHYLPREDNISOLONE [Suspect]
     Active Substance: METHYLPREDNISOLONE
     Indication: Prophylaxis of nausea and vomiting
     Dosage: 60 MILLIGRAM, SINGLE
     Route: 042
     Dates: start: 20240510, end: 20240510
  5. ONDANSETRON [Suspect]
     Active Substance: ONDANSETRON
     Indication: Prophylaxis of nausea and vomiting
     Dosage: 8 MILLIGRAM, SINGLE
     Route: 042
     Dates: start: 20240510, end: 20240510
  6. OPDIVO [Suspect]
     Active Substance: NIVOLUMAB
     Indication: Bronchial carcinoma
     Dosage: 360 MILLIGRAM, SINGLE
     Route: 042
     Dates: start: 20240510, end: 20240510
  7. PEMETREXED [Suspect]
     Active Substance: PEMETREXED
     Indication: Bronchial carcinoma
     Dosage: 900 MILLIGRAM, SINGLE
     Route: 042
     Dates: start: 20240510, end: 20240510
  8. FLUTICASONE FUROATE\VILANTEROL TRIFENATATE [Concomitant]
     Active Substance: FLUTICASONE FUROATE\VILANTEROL TRIFENATATE
     Indication: Product used for unknown indication
     Dosage: UNKNOWN
     Route: 065

REACTIONS (1)
  - Dizziness [Recovered/Resolved]

NARRATIVE: CASE EVENT DATE: 20240511
